FAERS Safety Report 8314748-X (Version None)
Quarter: 2012Q1

REPORT INFORMATION
  Report Type: 
  Country: None (occurrence: None)
  Receive Date: 20120315
  Receipt Date: 20110606
  Transmission Date: 20120608
  Serious: Yes (Other)
  Sender: FDA-Public Use
  Company Number: PHHY2011US18904

PATIENT
  Age: 42 Year
  Sex: Female
  Weight: 77 kg

DRUGS (9)
  1. MOI [Concomitant]
  2. VITAMIN D [Concomitant]
  3. LISINOPRIL [Concomitant]
  4. BACLOFEN [Concomitant]
  5. PRISTIQ [Concomitant]
  6. VITAMIN B12 [Concomitant]
  7. RECLIPSEN [Concomitant]
  8. ATENOLOL [Concomitant]
  9. GILENYA [Suspect]
     Indication: MULTIPLE SCLEROSIS
     Dosage: 0.5 MG, QD, ORAL
     Route: 048
     Dates: start: 20110304, end: 20110401

REACTIONS (7)
  - LYMPHOCYTE COUNT DECREASED [None]
  - BLOOD BILIRUBIN DECREASED [None]
  - BLOOD ALBUMIN DECREASED [None]
  - HYPOAESTHESIA [None]
  - HEADACHE [None]
  - NEUTROPHIL COUNT INCREASED [None]
  - MUSCULOSKELETAL STIFFNESS [None]
